FAERS Safety Report 12208376 (Version 5)
Quarter: 2016Q3

REPORT INFORMATION
  Report Type: Report from Study
  Country: DE (occurrence: DE)
  Receive Date: 20160324
  Receipt Date: 20160705
  Transmission Date: 20161109
  Serious: Yes (Death, Hospitalization)
  Sender: FDA-Public Use
  Company Number: DE-BAYER-2016-052860

PATIENT
  Age: 85 Year
  Sex: Male
  Weight: 72 kg

DRUGS (9)
  1. L-THYROXIN [Concomitant]
     Active Substance: LEVOTHYROXINE SODIUM
     Dosage: DAILY DOSE 25 MG
     Dates: start: 201510
  2. XOFIGO [Suspect]
     Active Substance: RADIUM RA-223 DICHLORIDE
     Indication: METASTASES TO BONE
     Dosage: 3.45 MBQ, ONCE
     Route: 042
     Dates: start: 20160218, end: 20160218
  3. AMITRIPTYLIN [Concomitant]
     Active Substance: AMITRIPTYLINE
     Dosage: DAILY DOSE 25MG
     Dates: start: 2010
  4. VIGANTOLETTEN [Concomitant]
     Active Substance: CHOLECALCIFEROL
     Dosage: DAILY DOSE 500MG
     Dates: start: 2010
  5. LAXATAN A [Concomitant]
     Dosage: UNK
     Dates: start: 201503
  6. PROSTAGUTT [Concomitant]
     Dosage: UNK
     Dates: start: 2012
  7. TAMSULOSIN [Concomitant]
     Active Substance: TAMSULOSIN
     Dosage: DAILY DOSE 0.4MG
     Dates: start: 2010
  8. TILIDIN [Concomitant]
     Active Substance: NALOXONE HYDROCHLORIDE\TILIDINE HYDROCHLORIDE
     Dosage: 100 MG, BID
     Route: 048
     Dates: start: 201502
  9. XOFIGO [Suspect]
     Active Substance: RADIUM RA-223 DICHLORIDE
     Indication: PROSTATE CANCER METASTATIC
     Dosage: 3.6 MBQ, ONCE
     Route: 042
     Dates: start: 20160120, end: 20160120

REACTIONS (2)
  - Gastroenteritis norovirus [Recovered/Resolved]
  - Pancytopenia [Fatal]

NARRATIVE: CASE EVENT DATE: 20160305
